FAERS Safety Report 6634687-X (Version None)
Quarter: 2010Q1

REPORT INFORMATION
  Report Type: 
  Country: None (occurrence: None)
  Receive Date: 20100315
  Receipt Date: 20100308
  Transmission Date: 20100710
  Serious: Yes (Life-Threatening, Hospitalization, Disabling, Other)
  Sender: FDA-Public Use
  Company Number: PR-BAYER-200931124NA

PATIENT
  Age: 35 Year
  Sex: Female
  Weight: 77 kg

DRUGS (1)
  1. AVELOX [Suspect]
     Indication: OROPHARYNGEAL PAIN
     Dosage: TOTAL DAILY DOSE: 400 MG  UNIT DOSE: 400 MG
     Dates: start: 20071103, end: 20071104

REACTIONS (12)
  - ALOPECIA [None]
  - ARTHROPATHY [None]
  - BLINDNESS [None]
  - HYPERSENSITIVITY [None]
  - KERATITIS [None]
  - ONYCHOMADESIS [None]
  - SKIN LESION [None]
  - STEVENS-JOHNSON SYNDROME [None]
  - SYMBLEPHARON [None]
  - ULCER [None]
  - URINARY TRACT INFECTION [None]
  - VISION BLURRED [None]
